FAERS Safety Report 6997119-8 (Version None)
Quarter: 2010Q3

REPORT INFORMATION
  Report Type: 
  Country: None (occurrence: None)
  Receive Date: 20100918
  Receipt Date: 20090909
  Transmission Date: 20110219
  Serious: No
  Sender: FDA-Public Use
  Company Number: US-WYE-H10913909

PATIENT
  Sex: Female

DRUGS (5)
  1. PRISTIQ [Suspect]
     Indication: MENOPAUSAL SYMPTOMS
     Route: 048
     Dates: start: 20090819, end: 20090901
  2. PRISTIQ [Suspect]
     Route: 048
     Dates: start: 20090902
  3. LORTAB [Concomitant]
  4. SOMA [Concomitant]
  5. ESTRACE [Concomitant]

REACTIONS (3)
  - APATHY [None]
  - CRYING [None]
  - MEDICATION RESIDUE [None]
